FAERS Safety Report 8853127 (Version 1)
Quarter: 2012Q4

REPORT INFORMATION
  Report Type: 
  Country: US (occurrence: US)
  Receive Date: 20121023
  Receipt Date: 20121023
  Transmission Date: 20130627
  Serious: Yes (Other)
  Sender: FDA-Public Use
  Company Number: US-ABBOTT-12P-163-0995038-00

PATIENT
  Sex: Female
  Weight: 73.09 kg

DRUGS (3)
  1. NIASPAN (COATED) [Suspect]
     Indication: PRODUCT USED FOR UNKNOWN INDICATION
     Dates: start: 2001
  2. LIPITOR [Concomitant]
     Indication: PRODUCT USED FOR UNKNOWN INDICATION
     Dates: start: 1990
  3. ASPIRIN [Concomitant]
     Indication: PRODUCT USED FOR UNKNOWN INDICATION

REACTIONS (5)
  - Macular fibrosis [Recovered/Resolved]
  - Faeces discoloured [Recovering/Resolving]
  - Medication residue [Recovered/Resolved]
  - Memory impairment [Recovered/Resolved]
  - Diarrhoea [Recovering/Resolving]
